FAERS Safety Report 4773087-4 (Version None)
Quarter: 2005Q3

REPORT INFORMATION
  Report Type: 
  Country: None (occurrence: None)
  Receive Date: 20050916
  Receipt Date: 20050909
  Transmission Date: 20060218
  Serious: Yes (Other)
  Sender: FDA-Public Use
  Company Number: KII-2005-0018541

PATIENT
  Age: 34 Year
  Sex: Male

DRUGS (1)
  1. OXYCONTIN [Suspect]
     Indication: INTENTIONAL MISUSE
     Dosage: SEE TEXT, INTRAVENOUS
     Route: 042

REACTIONS (7)
  - ACCIDENTAL OVERDOSE [None]
  - DRUG ABUSER [None]
  - DYSARTHRIA [None]
  - HEART RATE INCREASED [None]
  - LOSS OF CONSCIOUSNESS [None]
  - MIOSIS [None]
  - OXYGEN SATURATION DECREASED [None]
